FAERS Safety Report 25230405 (Version 1)
Quarter: 2025Q2

REPORT INFORMATION
  Report Type: Spontaneous
  Country: US (occurrence: None)
  Receive Date: 20250422
  Receipt Date: 20250422
  Transmission Date: 20250716
  Serious: Yes (Other)
  Sender: FDA-CTU
  Company Number: None

PATIENT
  Age: 21 Year
  Sex: Female
  Weight: 53.1 kg

DRUGS (1)
  1. TRETINOIN [Suspect]
     Active Substance: TRETINOIN
     Indication: Acne
     Dosage: FREQUENCY : AT BEDTIME;?
     Route: 061

REACTIONS (4)
  - Product communication issue [None]
  - Burns second degree [None]
  - Blister [None]
  - Dehydration [None]

NARRATIVE: CASE EVENT DATE: 20250418
